FAERS Safety Report 18595787 (Version 2)
Quarter: 2021Q1

REPORT INFORMATION
  Report Type: Spontaneous
  Country: FR (occurrence: FR)
  Receive Date: 20201209
  Receipt Date: 20210114
  Transmission Date: 20210419
  Serious: Yes (Life-Threatening)
  Sender: FDA-Public Use
  Company Number: FR-MYLANLABS-2020M1100456

PATIENT
  Age: 22 Year
  Sex: Female

DRUGS (12)
  1. DIPRIVAN [Suspect]
     Active Substance: PROPOFOL
     Indication: GENERAL ANAESTHESIA
     Dosage: 300 MICROGRAM, TOTAL
     Route: 040
     Dates: start: 20190920, end: 20190920
  2. SUFENTANIL [Suspect]
     Active Substance: SUFENTANIL
     Indication: GENERAL ANAESTHESIA
     Dosage: 40 MICROGRAM(25 + 15 ?G)
     Route: 041
     Dates: start: 20190920, end: 20190920
  3. KETAMINE [Suspect]
     Active Substance: KETAMINE
     Indication: GENERAL ANAESTHESIA
     Dosage: 25 MILLIGRAM, TOTAL
     Route: 040
     Dates: start: 20190920, end: 20190920
  4. DEXAMETHASONE. [Suspect]
     Active Substance: DEXAMETHASONE
     Indication: PROPHYLAXIS
     Dosage: 10 MILLIGRAM, TOTAL
     Route: 040
     Dates: start: 20190920, end: 20190920
  5. CEFAZOLIN MYLAN [Suspect]
     Active Substance: CEFAZOLIN
     Indication: ANTIBIOTIC PROPHYLAXIS
     Dosage: 2 GRAM, TOTAL
     Route: 040
     Dates: start: 20190920, end: 20190920
  6. SEVORANE [Concomitant]
     Active Substance: SEVOFLURANE
     Indication: ANAESTHESIA
     Dosage: UNK
     Route: 049
     Dates: start: 20190920, end: 20190920
  7. HYPNOVEL                           /00634101/ [Suspect]
     Active Substance: MIDAZOLAM HYDROCHLORIDE
     Indication: GENERAL ANAESTHESIA
     Dosage: 2 MILLIGRAM, TOTAL
     Route: 040
     Dates: start: 20190920, end: 20190920
  8. NAROPEINE [Suspect]
     Active Substance: ROPIVACAINE HYDROCHLORIDE
     Indication: GENERAL ANAESTHESIA
     Dosage: UNK(INCONNUE)
     Route: 040
     Dates: start: 20190920, end: 20190920
  9. PERFALGAN [Concomitant]
     Active Substance: ACETAMINOPHEN
     Indication: PAIN
     Dosage: 1 GRAM, TOTAL
     Route: 041
     Dates: start: 20190920, end: 20190921
  10. DROLEPTAN [Suspect]
     Active Substance: DROPERIDOL
     Indication: PROPHYLAXIS
     Dosage: 1.25 MILLIGRAM, TOTAL
     Route: 040
     Dates: start: 20190920, end: 20190920
  11. PROFENID [Suspect]
     Active Substance: KETOPROFEN
     Indication: PAIN
     Dosage: 150 MILLIGRAM, TOTAL
     Route: 040
     Dates: start: 20190920, end: 20190920
  12. ACUPAN [Concomitant]
     Active Substance: NEFOPAM HYDROCHLORIDE
     Indication: PAIN
     Dosage: 10 MILLIGRAM, TOTAL
     Route: 040
     Dates: start: 20190920, end: 20190921

REACTIONS (4)
  - Urticaria [Recovered/Resolved]
  - Hypotension [Recovered/Resolved]
  - Oxygen saturation decreased [Recovered/Resolved]
  - Tachycardia [Recovered/Resolved]

NARRATIVE: CASE EVENT DATE: 20190920
